FAERS Safety Report 7565305-4 (Version None)
Quarter: 2011Q2

REPORT INFORMATION
  Report Type: 
  Country: None (occurrence: None)
  Receive Date: 20110623
  Receipt Date: 20110617
  Transmission Date: 20111010
  Serious: Yes (Hospitalization)
  Sender: FDA-Public Use
  Company Number: CA-BIOGENIDEC-2011BI006552

PATIENT
  Age: 41 Year
  Sex: Female

DRUGS (7)
  1. NAPROXEN (ALEVE) [Concomitant]
  2. FLOMAX [Concomitant]
  3. GABAPENTIN [Concomitant]
  4. MACROBID [Concomitant]
  5. AMITRIPTYLINE HCL [Concomitant]
  6. TYSABRI [Suspect]
     Indication: RELAPSING-REMITTING MULTIPLE SCLEROSIS
     Route: 042
     Dates: start: 20071018
  7. VITAMIN D [Concomitant]

REACTIONS (1)
  - UTERINE LEIOMYOMA [None]
